FAERS Safety Report 5812766-4 (Version None)
Quarter: 2008Q3

REPORT INFORMATION
  Report Type: 
  Country: None (occurrence: None)
  Receive Date: 20080714
  Receipt Date: 20080703
  Transmission Date: 20090109
  Serious: Yes (Other)
  Sender: FDA-Public Use
  Company Number: 2008AP001114

PATIENT
  Age: 84 Year
  Sex: Female

DRUGS (7)
  1. CARBIDOPA AND LEVODOPA [Suspect]
     Indication: PARKINSON'S DISEASE
     Dosage: 1 TAB; QID; PO
     Route: 048
     Dates: start: 20080401, end: 20080508
  2. METOPROLOL TARTRATE [Concomitant]
  3. TOLBUTAMIDE [Concomitant]
  4. SELEGILINE HCL [Concomitant]
  5. CALCIUM [Concomitant]
  6. VITAMIN TAB [Concomitant]
  7. CARBIDOPA AND LEVODOPA [Concomitant]

REACTIONS (3)
  - DRUG INEFFECTIVE [None]
  - MOVEMENT DISORDER [None]
  - PAIN IN EXTREMITY [None]
